FAERS Safety Report 21696052 (Version 1)
Quarter: 2022Q4

REPORT INFORMATION
  Report Type: Spontaneous
  Country: PL (occurrence: PL)
  Receive Date: 20221207
  Receipt Date: 20221207
  Transmission Date: 20230113
  Serious: Yes (Other)
  Sender: FDA-Public Use
  Company Number: None

PATIENT
  Sex: Male
  Weight: 19 kg

DRUGS (1)
  1. ATROPINE SULFATE [Suspect]
     Active Substance: ATROPINE SULFATE
     Indication: Strabismus
     Dosage: 2X 1 DROP
     Dates: start: 20181204, end: 20181210

REACTIONS (4)
  - Conjunctival hyperaemia [Recovering/Resolving]
  - Conjunctivitis [Recovering/Resolving]
  - Eye pruritus [Recovering/Resolving]
  - Off label use [Unknown]
